FAERS Safety Report 20390751 (Version 1)
Quarter: 2022Q1

REPORT INFORMATION
  Report Type: Spontaneous
  Country: US (occurrence: US)
  Receive Date: 20220128
  Receipt Date: 20220128
  Transmission Date: 20220423
  Serious: No
  Sender: FDA-Public Use
  Company Number: US-BEH-2022141116

PATIENT
  Sex: Male

DRUGS (1)
  1. PRIVIGEN [Suspect]
     Active Substance: HUMAN IMMUNOGLOBULIN G
     Indication: Chronic inflammatory demyelinating polyradiculoneuropathy
     Dosage: UNK
     Route: 065

REACTIONS (16)
  - Oxygen saturation decreased [Unknown]
  - Recalled product administered [Unknown]
  - Pruritus [Recovered/Resolved]
  - Flushing [Unknown]
  - Swelling of eyelid [Recovering/Resolving]
  - Swelling face [Unknown]
  - Swelling [Unknown]
  - Erythema [Recovering/Resolving]
  - Urticaria [Recovering/Resolving]
  - Recalled product administered [Recovered/Resolved]
  - Recalled product administered [Unknown]
  - Recalled product administered [Recovering/Resolving]
  - Recalled product administered [Unknown]
  - Recalled product administered [Unknown]
  - Recalled product administered [Recovering/Resolving]
  - Recalled product administered [Recovering/Resolving]
